FAERS Safety Report 9458677 (Version 1)
Quarter: 2013Q3

REPORT INFORMATION
  Report Type: Spontaneous
  Country: IT (occurrence: IT)
  Receive Date: 20130814
  Receipt Date: 20130814
  Transmission Date: 20140515
  Serious: Yes (Hospitalization, Other)
  Sender: FDA-Public Use
  Company Number: IT-TEVA-425636ISR

PATIENT
  Age: 82 Year
  Sex: Male

DRUGS (6)
  1. CLOPIDOGREL [Suspect]
     Indication: THROMBOSIS PROPHYLAXIS
     Dosage: 75 MILLIGRAM DAILY;
     Route: 048
     Dates: start: 20130630, end: 20130711
  2. CARDIOASPIRIN [Interacting]
     Indication: PLATELET AGGREGATION INHIBITION
     Dosage: 100 MILLIGRAM DAILY; GASTRORESISTENT TABLET
     Route: 048
     Dates: start: 20130630, end: 20130715
  3. CLEXANE [Interacting]
     Indication: THROMBOSIS PROPHYLAXIS
     Dosage: .8 ML DAILY;
     Route: 058
     Dates: start: 20130702, end: 20130711
  4. ATORVASTATINA [Concomitant]
     Indication: HYPERCHOLESTEROLAEMIA
     Dates: start: 20130702, end: 20130714
  5. BISOPROLOLO EMIFUMARATO [Concomitant]
     Indication: ATRIAL FIBRILLATION
  6. PANTOPRAZOLE [Concomitant]
     Indication: PROPHYLAXIS AGAINST GASTROINTESTINAL ULCER

REACTIONS (2)
  - Haematuria [Recovered/Resolved]
  - Drug interaction [Unknown]
